FAERS Safety Report 24194255 (Version 1)
Quarter: 2024Q3

REPORT INFORMATION
  Report Type: Spontaneous
  Country: BR (occurrence: None)
  Receive Date: 20240809
  Receipt Date: 20240809
  Transmission Date: 20241017
  Serious: Yes (Life-Threatening)
  Sender: ASTRAZENECA
  Company Number: 2024A179903

PATIENT
  Sex: Female

DRUGS (1)
  1. SYMBICORT [Suspect]
     Active Substance: BUDESONIDE\FORMOTEROL FUMARATE DIHYDRATE
     Dosage: TWO PUFFS DAILY; 160/4.5MCG, AS REQUIRED AS REQUIRED
     Route: 055
     Dates: end: 20240802

REACTIONS (5)
  - Asthmatic crisis [Unknown]
  - Anger [Unknown]
  - Off label use [Unknown]
  - Intentional dose omission [Unknown]
  - Drug delivery system issue [Unknown]
